FAERS Safety Report 8310611-9 (Version None)
Quarter: 2012Q2

REPORT INFORMATION
  Report Type: 
  Country: None (occurrence: None)
  Receive Date: 20120425
  Receipt Date: 20120425
  Transmission Date: 20120825
  Serious: No
  Sender: FDA-Public Use
  Company Number: None

PATIENT
  Age: 54 Year
  Sex: Female
  Weight: 73.481 kg

DRUGS (1)
  1. ATELVIA [Suspect]
     Indication: BONE DENSITY ABNORMAL
     Dosage: ONCE 35MG
     Route: 048
     Dates: start: 20120421, end: 20120421

REACTIONS (5)
  - CHILLS [None]
  - NAUSEA [None]
  - DIARRHOEA [None]
  - INFLUENZA LIKE ILLNESS [None]
  - PYREXIA [None]
